FAERS Safety Report 6599243-0 (Version None)
Quarter: 2010Q1

REPORT INFORMATION
  Report Type: 
  Country: None (occurrence: None)
  Receive Date: 20100224
  Receipt Date: 20100216
  Transmission Date: 20100710
  Serious: Yes (Hospitalization)
  Sender: FDA-Public Use
  Company Number: PHHO2010CZ02582

PATIENT
  Sex: Male
  Weight: 87 kg

DRUGS (3)
  1. AFINITOR [Suspect]
     Indication: METASTATIC RENAL CELL CARCINOMA
     Dosage: 10MG
     Route: 048
     Dates: start: 20100113
  2. AVASTIN [Suspect]
     Indication: METASTATIC RENAL CELL CARCINOMA
     Dosage: 880MG
     Route: 042
     Dates: start: 20100113
  3. GELCLAIR [Concomitant]
     Indication: STOMATITIS
     Dosage: UNK
     Dates: start: 20100127

REACTIONS (1)
  - OESOPHAGITIS [None]
